FAERS Safety Report 9350393 (Version 2)
Quarter: 2013Q3

REPORT INFORMATION
  Report Type: Spontaneous
  Country: US (occurrence: US)
  Receive Date: 20130617
  Receipt Date: 20130718
  Transmission Date: 20140515
  Serious: Yes (Death)
  Sender: FDA-Public Use
  Company Number: US-CELGENEUS-163-POMAL-13062121

PATIENT
  Age: 61 Year
  Sex: Female

DRUGS (8)
  1. POMALYST [Suspect]
     Indication: PLASMA CELL MYELOMA
     Dosage: 3 MILLIGRAM
     Route: 065
     Dates: start: 20130330, end: 20130409
  2. KLOR-CON [Concomitant]
     Indication: PRODUCT USED FOR UNKNOWN INDICATION
     Dosage: 40 MILLIEQUIVALENTS
     Route: 048
     Dates: start: 20130330, end: 20130409
  3. OXY IR [Concomitant]
     Indication: PAIN
     Route: 048
     Dates: start: 20130330, end: 20130409
  4. MAGOX [Concomitant]
     Indication: PRODUCT USED FOR UNKNOWN INDICATION
     Dosage: 800
     Route: 048
     Dates: start: 20130330, end: 20130409
  5. ZOFRAN [Concomitant]
     Indication: NAUSEA
     Route: 048
     Dates: start: 20130330, end: 20130409
  6. ATIVAN [Concomitant]
     Indication: PRODUCT USED FOR UNKNOWN INDICATION
     Dosage: .5 MILLIGRAM
     Route: 048
     Dates: start: 20130330, end: 20130409
  7. OXYCONTIN [Concomitant]
     Indication: SLEEP DISORDER
     Route: 048
     Dates: start: 20130330, end: 20130409
  8. DECADRON [Concomitant]
     Indication: PAIN
     Route: 048
     Dates: start: 20130330, end: 20130409

REACTIONS (1)
  - Plasma cell myeloma [Fatal]
